FAERS Safety Report 24388834 (Version 3)
Quarter: 2025Q1

REPORT INFORMATION
  Report Type: Spontaneous
  Country: PT (occurrence: PT)
  Receive Date: 20241002
  Receipt Date: 20250307
  Transmission Date: 20250408
  Serious: Yes (Other)
  Sender: NOVO NORDISK
  Company Number: PT-NOVOPROD-1148935

PATIENT
  Age: 36 Year
  Sex: Female
  Weight: 52 kg

DRUGS (3)
  1. ESTRADIOL HEMIHYDRATE [Suspect]
     Active Substance: ESTRADIOL HEMIHYDRATE
     Indication: In vitro fertilisation
     Dosage: 2 MG, TID (2 MILLIGRAM EVERY 8 HOURS)
     Route: 048
     Dates: start: 20231018, end: 20231130
  2. TROMALYT [Concomitant]
     Active Substance: ASPIRIN
     Indication: Product used for unknown indication
     Dates: start: 20231127
  3. INFLIXIMAB [Concomitant]
     Active Substance: INFLIXIMAB
     Indication: Crohn^s disease
     Route: 042

REACTIONS (4)
  - Placenta praevia [Recovered/Resolved]
  - Hypersensitivity [Recovered/Resolved with Sequelae]
  - Maternal exposure during pregnancy [Recovered/Resolved]
  - Product use in unapproved indication [Recovered/Resolved]

NARRATIVE: CASE EVENT DATE: 20231018
